FAERS Safety Report 16868145 (Version 1)
Quarter: 2019Q3

REPORT INFORMATION
  Report Type: Spontaneous
  Country: FR (occurrence: FR)
  Receive Date: 20190930
  Receipt Date: 20190930
  Transmission Date: 20191005
  Serious: Yes (Hospitalization)
  Sender: FDA-Public Use
  Company Number: FR-MYLANLABS-2019M1090128

PATIENT
  Age: 35 Year
  Sex: Male
  Weight: 67 kg

DRUGS (5)
  1. HYDROXYZINE [Suspect]
     Active Substance: HYDROXYZINE HYDROCHLORIDE
     Indication: PRODUCT USED FOR UNKNOWN INDICATION
     Dosage: 1400 MILLIGRAM
     Route: 048
     Dates: start: 20190425, end: 20190425
  2. IZALGI [Suspect]
     Active Substance: ACETAMINOPHEN\OPIUM
     Indication: PRODUCT USED FOR UNKNOWN INDICATION
     Dosage: 53 DOSAGE FORM
     Route: 048
     Dates: start: 20190425, end: 20190425
  3. SKENAN [Suspect]
     Active Substance: MORPHINE SULFATE
     Indication: PRODUCT USED FOR UNKNOWN INDICATION
     Dosage: 1260 MILLIGRAM
     Route: 048
     Dates: start: 20190425, end: 20190425
  4. TRAMADOL MYLAN [Suspect]
     Active Substance: TRAMADOL
     Indication: PRODUCT USED FOR UNKNOWN INDICATION
     Dosage: 2100 MILLIGRAM
     Route: 048
     Dates: start: 20190425, end: 20190425
  5. OXAZEPAM. [Suspect]
     Active Substance: OXAZEPAM
     Indication: PRODUCT USED FOR UNKNOWN INDICATION
     Dosage: 150 MILLIGRAM
     Route: 048
     Dates: start: 20190425, end: 20190425

REACTIONS (6)
  - Coma [Recovered/Resolved]
  - Aspartate aminotransferase increased [Recovered/Resolved]
  - Toxicity to various agents [Unknown]
  - Rhabdomyolysis [Recovered/Resolved]
  - Renal failure [Recovered/Resolved]
  - Bradypnoea [Recovered/Resolved]

NARRATIVE: CASE EVENT DATE: 20190425
